FAERS Safety Report 4423814-0 (Version None)
Quarter: 2004Q3

REPORT INFORMATION
  Report Type: 
  Country: None (occurrence: None)
  Receive Date: 20040714
  Receipt Date: 20040324
  Transmission Date: 20050211
  Serious: Yes (Other)
  Sender: FDA-Public Use
  Company Number: HQWYE213429MAR04

PATIENT
  Age: 84 Year
  Sex: Female
  Weight: 61.29 kg

DRUGS (3)
  1. ALAVERT [Suspect]
     Indication: HYPERSENSITIVITY
     Dosage: ONE TABLET AS NEEDED, ORAL
     Route: 048
     Dates: start: 20020101
  2. DETROL [Concomitant]
  3. SYNTHROID [Concomitant]

REACTIONS (1)
  - DIZZINESS [None]
